FAERS Safety Report 4709145-X (Version None)
Quarter: 2005Q3

REPORT INFORMATION
  Report Type: 
  Country: None (occurrence: None)
  Receive Date: 20050705
  Receipt Date: 20050622
  Transmission Date: 20060218
  Serious: Yes (Hospitalization, Other)
  Sender: FDA-Public Use
  Company Number: 2005091695

PATIENT
  Sex: Female
  Weight: 48.5349 kg

DRUGS (16)
  1. ZOLOFT [Suspect]
     Indication: DEPRESSION
     Dosage: ORAL
     Route: 048
  2. LIPITOR [Suspect]
     Indication: ILL-DEFINED DISORDER
     Dosage: ORAL
     Route: 048
  3. POTASSIUM (POTASSIUM) [Concomitant]
  4. MONTELUKAST (MONTELUKAST) [Concomitant]
  5. TRAZODONE (TRAZODONE) [Concomitant]
  6. ARICEPT [Suspect]
     Indication: DEMENTIA ALZHEIMER'S TYPE
     Dosage: 5 MG, (5 MG, 1 IN 1 D), ORAL
     Route: 048
  7. PRIMIDONE [Concomitant]
  8. FOSAMAX [Concomitant]
  9. ADVAIR (FLUTICASONE PRIOPIONATE, SALMETEROL XINAFOATE) [Concomitant]
  10. ASPIRIN [Concomitant]
  11. CALCIUM (CALCIUM) [Concomitant]
  12. ICAPS (MINERALS NOS, VITAMINS NOS) [Concomitant]
  13. VALSARATAN (VALSARTAN) [Concomitant]
  14. TORSEMIDE (TORSEMIDE) [Concomitant]
  15. TOPROL (METOPROLOL) [Concomitant]
  16. COMBIVENT [Concomitant]

REACTIONS (16)
  - CARDIAC DISORDER [None]
  - CARDIAC VALVE DISEASE [None]
  - CONFUSIONAL STATE [None]
  - DEMENTIA ALZHEIMER'S TYPE [None]
  - DEPRESSION [None]
  - DISEASE PROGRESSION [None]
  - EXTRASYSTOLES [None]
  - GENERAL PHYSICAL HEALTH DETERIORATION [None]
  - LETHARGY [None]
  - MEMORY IMPAIRMENT [None]
  - NAUSEA [None]
  - ORAL INTAKE REDUCED [None]
  - PNEUMONIA [None]
  - SLUGGISHNESS [None]
  - SUICIDAL IDEATION [None]
  - WEIGHT DECREASED [None]
